FAERS Safety Report 13568392 (Version 1)
Quarter: 2017Q2

REPORT INFORMATION
  Report Type: Spontaneous
  Country: US (occurrence: US)
  Receive Date: 20170522
  Receipt Date: 20170522
  Transmission Date: 20170830
  Serious: No
  Sender: FDA-Public Use
  Company Number: US-PFIZER INC-2017219836

PATIENT
  Sex: Female

DRUGS (1)
  1. LINEZOLID. [Suspect]
     Active Substance: LINEZOLID
     Indication: PSEUDOMONAS INFECTION
     Dosage: 600 MG, UNK
     Route: 048

REACTIONS (7)
  - Headache [Unknown]
  - Asthma [Unknown]
  - Contusion [Unknown]
  - Pyrexia [Unknown]
  - Diarrhoea [Unknown]
  - Product use in unapproved indication [Unknown]
  - Dyspnoea [Unknown]
